FAERS Safety Report 25705714 (Version 3)
Quarter: 2025Q4

REPORT INFORMATION
  Report Type: Report from Study
  Country: GB (occurrence: GB)
  Receive Date: 20250820
  Receipt Date: 20251119
  Transmission Date: 20260117
  Serious: Yes (Hospitalization, Other)
  Sender: NOVARTIS
  Company Number: GB-002147023-NVSC2025GB126352

PATIENT
  Age: 36 Year
  Sex: Male

DRUGS (3)
  1. KESIMPTA [Suspect]
     Active Substance: OFATUMUMAB
     Indication: Relapsing-remitting multiple sclerosis
     Dosage: 20 MG, OTHER (STARTING DOSES: ONCE A WEEK, MAINTENANCE DOSES: ONCE A MONTH)
     Route: 058
     Dates: start: 20250731
  2. KESIMPTA [Suspect]
     Active Substance: OFATUMUMAB
     Dosage: 20 MG, QW
     Route: 058
  3. KESIMPTA [Suspect]
     Active Substance: OFATUMUMAB
     Dosage: 20 MG, QMO
     Route: 058

REACTIONS (9)
  - Multiple sclerosis relapse [Recovering/Resolving]
  - Hemiparesis [Recovering/Resolving]
  - Facial paresis [Recovering/Resolving]
  - Dysphonia [Recovering/Resolving]
  - Multiple sclerosis [Not Recovered/Not Resolved]
  - Hypoaesthesia [Not Recovered/Not Resolved]
  - Pyrexia [Recovered/Resolved]
  - Hand-eye coordination impaired [Unknown]
  - Diarrhoea [Not Recovered/Not Resolved]

NARRATIVE: CASE EVENT DATE: 20250731
